FAERS Safety Report 4700545-0 (Version None)
Quarter: 2005Q2

REPORT INFORMATION
  Report Type: 
  Country: None (occurrence: None)
  Receive Date: 20050627
  Receipt Date: 20050627
  Transmission Date: 20051028
  Serious: Yes (Life-Threatening, Hospitalization)
  Sender: FDA-Public Use
  Company Number: None

PATIENT
  Sex: Female
  Weight: 54.8 kg

DRUGS (3)
  1. BUSULFAN [Suspect]
     Indication: LYMPHOMA
     Dosage: 180 MG  DAILY   INTRAVENOU
     Route: 042
     Dates: start: 20050316, end: 20050319
  2. FLUDARABINE PHOSPHATE [Suspect]
     Indication: LYMPHOMA
     Dosage: 40 MG   DAILY   INTRAVENOUS
     Route: 042
     Dates: start: 20050315, end: 20050319
  3. CAMPATH [Concomitant]

REACTIONS (5)
  - BK VIRUS INFECTION [None]
  - CYSTITIS [None]
  - HERPES SIMPLEX [None]
  - PNEUMONIA [None]
  - RESPIRATORY FAILURE [None]
